FAERS Safety Report 10073058 (Version 2)
Quarter: 2014Q2

REPORT INFORMATION
  Report Type: Spontaneous
  Country: None (occurrence: GB)
  Receive Date: 20140411
  Receipt Date: 20140411
  Transmission Date: 20141212
  Serious: Yes (Life-Threatening)
  Sender: FDA-Public Use
  Company Number: GB-EISAI INC-E7389-04900-SPO-GB

PATIENT
  Sex: Female
  Weight: 63.2 kg

DRUGS (10)
  1. HALAVEN [Suspect]
     Indication: BREAST CANCER
     Dosage: 0.97 MG/M2
     Route: 041
     Dates: start: 20140116
  2. AMILORIDE [Concomitant]
     Dosage: 5MG
     Route: 065
  3. ASPIRIN [Concomitant]
     Dosage: 75MG
     Route: 065
  4. DENOSUMAB [Concomitant]
     Dosage: 60MG
     Route: 058
  5. LEVOTHYROXINE [Concomitant]
     Dosage: 50 MCG
     Route: 065
  6. OMEGA-3 ACIDS [Concomitant]
     Dosage: 3 DF
     Route: 065
  7. OMEPRAZOLE [Concomitant]
     Dosage: 20 MG
     Route: 065
  8. ONDANSETRON [Concomitant]
     Dosage: 4MG
     Route: 048
     Dates: start: 20140313
  9. PARACETAMOL [Concomitant]
     Dosage: 1 GRAM
     Route: 065
  10. PERINDOPRIL [Concomitant]
     Dosage: 2MG
     Route: 065

REACTIONS (2)
  - Angioedema [Recovering/Resolving]
  - Rash [Recovering/Resolving]
